FAERS Safety Report 16398364 (Version 1)
Quarter: 2019Q2

REPORT INFORMATION
  Report Type: Spontaneous
  Country: CN (occurrence: CN)
  Receive Date: 20190606
  Receipt Date: 20190606
  Transmission Date: 20190711
  Serious: Yes (Other)
  Sender: FDA-Public Use
  Company Number: CN-PFIZER INC-2019238915

PATIENT
  Age: 84 Year
  Sex: Female
  Weight: 45 kg

DRUGS (2)
  1. MEDROL [Suspect]
     Active Substance: METHYLPREDNISOLONE
     Indication: HERPES ZOSTER
     Dosage: 10 MG, 1X/DAY
     Route: 048
     Dates: start: 20190511, end: 20190518
  2. PREGABALIN. [Suspect]
     Active Substance: PREGABALIN
     Indication: HERPES ZOSTER
     Dosage: 75 MG, 1X/DAY
     Route: 048
     Dates: start: 20190513, end: 20190513

REACTIONS (5)
  - Tremor [Recovering/Resolving]
  - Somnolence [Recovering/Resolving]
  - Disorganised speech [Recovering/Resolving]
  - Toxic encephalopathy [Recovering/Resolving]
  - Bradyphrenia [Recovering/Resolving]

NARRATIVE: CASE EVENT DATE: 20190513
